FAERS Safety Report 5044604-4 (Version None)
Quarter: 2006Q2

REPORT INFORMATION
  Report Type: 
  Country: None (occurrence: None)
  Receive Date: 20060629
  Receipt Date: 20060615
  Transmission Date: 20061013
  Serious: Yes (Other)
  Sender: FDA-Public Use
  Company Number: 805#9#2006-00081

PATIENT
  Age: 3 Day
  Sex: Female

DRUGS (4)
  1. ALPROSTADIL [Suspect]
     Indication: HEART DISEASE CONGENITAL
     Dosage: 1.3 NG/KG/MIN
     Route: 041
     Dates: start: 20040817, end: 20040831
  2. CHOLINE THEOPHYLLINATE (CHOLINE THEOPHYLLINATE) [Concomitant]
  3. MENATETRENONE (MENATETRENONE) [Concomitant]
  4. CALCIUM GLUCONATE [Concomitant]

REACTIONS (2)
  - CONDITION AGGRAVATED [None]
  - INFANTILE APNOEIC ATTACK [None]
